FAERS Safety Report 4577371-9 (Version None)
Quarter: 2005Q1

REPORT INFORMATION
  Report Type: 
  Country: None (occurrence: None)
  Receive Date: 20050210
  Receipt Date: 20050202
  Transmission Date: 20050727
  Serious: Yes (Hospitalization)
  Sender: FDA-Public Use
  Company Number: FR-GLAXOSMITHKLINE-B0370104A

PATIENT
  Age: 14 Year
  Sex: Male

DRUGS (3)
  1. AUGMENTIN '125' [Suspect]
     Indication: PAROTITIS
     Route: 048
     Dates: start: 20031007, end: 20031010
  2. SULFARLEM [Suspect]
     Indication: PAROTITIS
     Route: 048
     Dates: start: 20031007, end: 20031010
  3. VOLTAREN [Suspect]
     Indication: PAROTITIS
     Dosage: 75MG PER DAY
     Route: 048
     Dates: start: 20031007, end: 20031010

REACTIONS (6)
  - CELLULITIS [None]
  - NASOPHARYNGEAL DISORDER [None]
  - OEDEMA [None]
  - PAROTID GLAND ENLARGEMENT [None]
  - RESPIRATORY DISTRESS [None]
  - SUBMAXILLARY GLAND ENLARGEMENT [None]
